FAERS Safety Report 8529846-5 (Version None)
Quarter: 2012Q3

REPORT INFORMATION
  Report Type: 
  Country: None (occurrence: None)
  Receive Date: 20120710
  Receipt Date: 20120627
  Transmission Date: 20120928
  Serious: Yes (Other)
  Sender: FDA-Public Use
  Company Number: FK201201803

PATIENT
  Age: 45 Year
  Sex: Female

DRUGS (1)
  1. DOXYCYCLINE HYCLATE [Suspect]
     Indication: PURULENT DISCHARGE
     Dosage: 100 MG, 1 IN 1 D,

REACTIONS (2)
  - HERPES SIMPLEX [None]
  - OESOPHAGEAL ULCER [None]
